FAERS Safety Report 8436983-2 (Version None)
Quarter: 2012Q2

REPORT INFORMATION
  Report Type: 
  Country: None (occurrence: None)
  Receive Date: 20120614
  Receipt Date: 20120612
  Transmission Date: 20120825
  Serious: Yes (Other)
  Sender: FDA-Public Use
  Company Number: TR-EISAI INC-E2020-10910-SPO-TR

PATIENT
  Age: 85 Year
  Sex: Male

DRUGS (1)
  1. DONEPEZIL HCL [Suspect]
     Dosage: UNKNOWN
     Route: 048

REACTIONS (2)
  - SICK SINUS SYNDROME [None]
  - SYNCOPE [None]
